FAERS Safety Report 6470532-3 (Version None)
Quarter: 2009Q4

REPORT INFORMATION
  Report Type: 
  Country: None (occurrence: None)
  Receive Date: 20091202
  Receipt Date: 20091202
  Transmission Date: 20100525
  Serious: Yes (Death)
  Sender: FDA-Public Use
  Company Number: None

PATIENT
  Age: 75 Year
  Sex: Male
  Weight: 130.4 kg

DRUGS (26)
  1. ENOXAPARIN SODIUM [Suspect]
     Indication: CEREBROVASCULAR ACCIDENT
     Dosage: 130MG BID SQ  ONLY
     Route: 058
     Dates: start: 20091023
  2. LASIX [Concomitant]
  3. POTASSIUM CHLORIDE [Concomitant]
  4. ALLOPURINOL [Concomitant]
  5. GLIMEPIRIDE [Concomitant]
  6. CARVEDILOL [Concomitant]
  7. M.V.I. [Concomitant]
  8. WARFARIN SODIUM [Concomitant]
  9. DIGOXIN [Concomitant]
  10. ASPIRIN [Concomitant]
  11. JANUVIA [Concomitant]
  12. VITAMIN D [Concomitant]
  13. AMLODIPINE BESYLATE AND BENAZEPRIL HCL [Concomitant]
  14. ENOXAPARIN SODIUM [Concomitant]
  15. REGULAR INSULIN [Concomitant]
  16. LEVAQUIN [Concomitant]
  17. PROTONIX [Concomitant]
  18. ROCEPHIN [Concomitant]
  19. ACETAMINOPHEN [Concomitant]
  20. HYDROMORPHONE HCL [Concomitant]
  21. LORAZEPAM [Concomitant]
  22. MORPHINE [Concomitant]
  23. ZOFRAN [Concomitant]
  24. ROBINUL [Concomitant]
  25. LABETALOL HCL [Concomitant]
  26. SCOPOLAMINE [Concomitant]

REACTIONS (5)
  - BRAIN HERNIATION [None]
  - CEREBRAL HAEMORRHAGE [None]
  - GENERAL PHYSICAL HEALTH DETERIORATION [None]
  - ISCHAEMIC STROKE [None]
  - UNRESPONSIVE TO STIMULI [None]
